FAERS Safety Report 20925835 (Version 1)
Quarter: 2022Q2

REPORT INFORMATION
  Report Type: Report from Study
  Country: GB (occurrence: GB)
  Receive Date: 20220607
  Receipt Date: 20220607
  Transmission Date: 20220721
  Serious: Yes (Congenital Anomaly)
  Sender: FDA-Public Use
  Company Number: GB-ABBVIE-22K-167-4423895-00

PATIENT
  Sex: Male
  Weight: 2.915 kg

DRUGS (3)
  1. RITONAVIR [Suspect]
     Active Substance: RITONAVIR
     Indication: Maternal exposure timing unspecified
     Route: 064
  2. ATAZANAVIR [Suspect]
     Active Substance: ATAZANAVIR
     Indication: Maternal exposure timing unspecified
     Route: 064
  3. EMTRICITABINE\TENOFOVIR DISOPROXIL FUMARATE [Suspect]
     Active Substance: EMTRICITABINE\TENOFOVIR DISOPROXIL FUMARATE
     Indication: Maternal exposure timing unspecified
     Route: 064

REACTIONS (2)
  - Trisomy 21 [Unknown]
  - Foetal exposure during pregnancy [Unknown]
